FAERS Safety Report 18824054 (Version 6)
Quarter: 2022Q3

REPORT INFORMATION
  Report Type: Report from Study
  Country: US (occurrence: US)
  Receive Date: 20210202
  Receipt Date: 20220711
  Transmission Date: 20221027
  Serious: Yes (Hospitalization)
  Sender: FDA-Public Use
  Company Number: NVSC2021US015905

PATIENT
  Age: 74 Year
  Sex: Male
  Weight: 82.7 kg

DRUGS (17)
  1. ILARIS [Suspect]
     Active Substance: CANAKINUMAB
     Indication: Non-small cell lung cancer
     Dosage: 200 MG, Q3W
     Route: 042
     Dates: start: 20201116
  2. PEMBROLIZUMAB [Suspect]
     Active Substance: PEMBROLIZUMAB
     Indication: Non-small cell lung cancer
     Dosage: 200 MG, Q3W
     Route: 042
     Dates: start: 20201116
  3. TRIGLIDE [Concomitant]
     Active Substance: FENOFIBRATE
     Indication: Hyperlipidaemia
     Dosage: UNK
     Route: 065
     Dates: start: 20191024
  4. XANAX [Concomitant]
     Active Substance: ALPRAZOLAM
     Indication: Anxiety
     Dosage: UNK
     Route: 065
     Dates: start: 20201109
  5. VITAMIN D3 [Concomitant]
     Active Substance: CHOLECALCIFEROL
     Indication: General physical condition
     Dosage: UNK
     Route: 065
     Dates: start: 20201210
  6. VITAMIN B12 [Concomitant]
     Active Substance: CYANOCOBALAMIN
     Indication: General physical condition
     Dosage: UNK
     Route: 065
     Dates: start: 20201210
  7. GLUCOSAMINE [Concomitant]
     Active Substance: GLUCOSAMINE
     Indication: Arthritis
     Dosage: UNK
     Route: 065
     Dates: start: 20201210
  8. PYRIDOXINE [Concomitant]
     Active Substance: PYRIDOXINE
     Indication: General physical condition
     Dosage: UNK
     Route: 065
     Dates: start: 20201210
  9. VITAMIN E [Concomitant]
     Active Substance: .ALPHA.-TOCOPHEROL
     Indication: General physical condition
     Dosage: UNK
     Route: 065
     Dates: start: 20201210
  10. SENOKOT-S [Concomitant]
     Active Substance: DOCUSATE SODIUM\SENNOSIDES
     Indication: General physical condition
     Dosage: UNK
     Route: 065
     Dates: start: 20201221
  11. NORVASC [Concomitant]
     Active Substance: AMLODIPINE BESYLATE
     Indication: Hypertension
     Dosage: UNK
     Route: 065
     Dates: start: 20200911
  12. COREG [Concomitant]
     Active Substance: CARVEDILOL
     Indication: Hypertension
     Dosage: UNK
     Route: 065
     Dates: start: 20191112
  13. PLAVIX [Concomitant]
     Active Substance: CLOPIDOGREL BISULFATE
     Indication: Atrial fibrillation
     Dosage: UNK
     Route: 065
     Dates: start: 20191111
  14. FLONASE [Concomitant]
     Active Substance: FLUTICASONE PROPIONATE
     Indication: General physical condition
     Dosage: UNK
     Route: 065
     Dates: start: 20201107
  15. ZESTRIL [Concomitant]
     Active Substance: LISINOPRIL
     Indication: Hypertension
     Dosage: UNK
     Route: 065
     Dates: start: 20191111
  16. ASCORBIC ACID [Concomitant]
     Active Substance: ASCORBIC ACID
     Indication: General physical condition
     Dosage: UNK
     Route: 065
     Dates: start: 20201210
  17. ASPIRIN [Concomitant]
     Active Substance: ASPIRIN
     Indication: General physical condition
     Dosage: UNK
     Route: 065
     Dates: start: 20201210

REACTIONS (1)
  - Hyperglycaemia [Recovered/Resolved with Sequelae]

NARRATIVE: CASE EVENT DATE: 20210121
